FAERS Safety Report 9817495 (Version 3)
Quarter: 2014Q1

REPORT INFORMATION
  Report Type: Report from Study
  Country: PL (occurrence: PL)
  Receive Date: 20140115
  Receipt Date: 20140124
  Transmission Date: 20141002
  Serious: Yes (Other)
  Sender: FDA-Public Use
  Company Number: PL-ROCHE-1308582

PATIENT
  Age: 41 Year
  Sex: Female

DRUGS (5)
  1. PEGASYS [Suspect]
     Indication: CHRONIC HEPATITIS C
     Route: 058
     Dates: start: 20120914, end: 20131206
  2. PEGASYS [Suspect]
     Route: 058
  3. PEGASYS [Suspect]
     Route: 058
  4. COPEGUS [Suspect]
     Indication: CHRONIC HEPATITIS C
     Route: 048
     Dates: start: 20120914, end: 20131206
  5. COPEGUS [Suspect]
     Route: 048

REACTIONS (14)
  - Neutropenia [Unknown]
  - Leukopenia [Unknown]
  - Depression [Recovered/Resolved]
  - Anxiety disorder [Recovered/Resolved]
  - Exercise tolerance decreased [Unknown]
  - General symptom [Unknown]
  - Thrombocytopenia [Unknown]
  - Anaemia [Unknown]
  - Cough [Recovered/Resolved]
  - Infection [Unknown]
  - Asthenia [Unknown]
  - Overdose [Unknown]
  - Dry skin [Unknown]
  - Weight decreased [Unknown]
